FAERS Safety Report 7222285-9 (Version None)
Quarter: 2011Q1

REPORT INFORMATION
  Report Type: 
  Country: None (occurrence: None)
  Receive Date: 20110112
  Receipt Date: 20110110
  Transmission Date: 20110831
  Serious: Yes (Other)
  Sender: FDA-Public Use
  Company Number: US-BRISTOL-MYERS SQUIBB COMPANY-15399207

PATIENT
  Age: 80 Year
  Sex: Female

DRUGS (5)
  1. HUMALOG [Concomitant]
     Dosage: 1DF=50/50(35)UNIT NOT SPECIFIED.
  2. LANTUS [Concomitant]
     Dosage: 1 DF= 20 (UNIT NOT SPECIFIED).
  3. PLACEBO [Suspect]
     Indication: TYPE 2 DIABETES MELLITUS
     Dates: start: 20100730
  4. ACETYLSALICYLIC ACID [Concomitant]
  5. BLINDED: SAXAGLIPTIN [Suspect]
     Indication: TYPE 2 DIABETES MELLITUS
     Dosage: 1DF=2.5MG OR 5MG
     Dates: start: 20100730

REACTIONS (2)
  - PANCREATITIS [None]
  - BLOOD CREATININE INCREASED [None]
